FAERS Safety Report 12736137 (Version 5)
Quarter: 2017Q1

REPORT INFORMATION
  Report Type: Spontaneous
  Country: GB (occurrence: GB)
  Receive Date: 20160912
  Receipt Date: 20170324
  Transmission Date: 20170428
  Serious: Yes (Death, Hospitalization, Other)
  Sender: FDA-Public Use
  Company Number: GB-SA-2016SA164987

PATIENT
  Age: 42 Year
  Sex: Female
  Weight: 80 kg

DRUGS (16)
  1. IBUPROFEN. [Concomitant]
     Active Substance: IBUPROFEN
     Dates: start: 20160822, end: 20160826
  2. OXYBUTYNIN [Concomitant]
     Active Substance: OXYBUTYNIN
  3. ACYCLOVIR. [Concomitant]
     Active Substance: ACYCLOVIR
     Dates: start: 20160822, end: 20160826
  4. ONDANSETRON [Concomitant]
     Active Substance: ONDANSETRON
     Dates: start: 20160822, end: 20160826
  5. DULOXETINE. [Concomitant]
     Active Substance: DULOXETINE
  6. PARACETAMOL [Concomitant]
     Active Substance: ACETAMINOPHEN
     Dates: start: 20160822, end: 20160826
  7. CYCLIZINE [Concomitant]
     Active Substance: CYCLIZINE
  8. DIMETHYL FUMARATE [Concomitant]
     Active Substance: DIMETHYL FUMARATE
  9. THYROXIN [Concomitant]
     Active Substance: LEVOTHYROXINE
  10. CHLORPHENAMINE [Concomitant]
     Active Substance: CHLORPHENIRAMINE MALEATE
  11. LEMTRADA [Suspect]
     Active Substance: ALEMTUZUMAB
     Indication: MULTIPLE SCLEROSIS
     Route: 042
     Dates: start: 20160822, end: 20160826
  12. METHYLPREDNISOLONE. [Concomitant]
     Active Substance: METHYLPREDNISOLONE
     Dates: start: 20160822, end: 20160826
  13. CETIRIZINE [Concomitant]
     Active Substance: CETIRIZINE HYDROCHLORIDE
     Dates: start: 20160822, end: 20160826
  14. PREGABALIN. [Concomitant]
     Active Substance: PREGABALIN
  15. COLECALCIFEROL [Concomitant]
     Active Substance: CHOLECALCIFEROL
  16. SALBUTAMOL [Concomitant]
     Active Substance: ALBUTEROL
     Dates: start: 20160822, end: 20160826

REACTIONS (19)
  - Blood test abnormal [Fatal]
  - Tachypnoea [Fatal]
  - Pyrexia [Fatal]
  - Lethargy [Unknown]
  - Nausea [Unknown]
  - Listeria encephalitis [Fatal]
  - Tachycardia [Fatal]
  - Sepsis syndrome [Fatal]
  - General physical health deterioration [Fatal]
  - Headache [Fatal]
  - Diarrhoea [Fatal]
  - Vomiting [Fatal]
  - Coma scale abnormal [Unknown]
  - Malaise [Fatal]
  - Unresponsive to stimuli [Fatal]
  - Respiratory distress [Fatal]
  - Blood pressure abnormal [Fatal]
  - Brain oedema [Unknown]
  - Encephalitis [Not Recovered/Not Resolved]

NARRATIVE: CASE EVENT DATE: 2016
